FAERS Safety Report 8467380-1 (Version None)
Quarter: 2012Q2

REPORT INFORMATION
  Report Type: 
  Country: None (occurrence: None)
  Receive Date: 20120626
  Receipt Date: 20120611
  Transmission Date: 20120825
  Serious: No
  Sender: FDA-Public Use
  Company Number: US-ASTRAZENECA-2012SE08610

PATIENT
  Age: 51 Year
  Sex: Female

DRUGS (7)
  1. ZANTAC [Concomitant]
  2. PRILOSEC OTC [Suspect]
     Route: 048
  3. OMEPRAZOLE [Suspect]
     Route: 048
  4. PEPCID [Concomitant]
  5. NEXIUM [Suspect]
     Route: 048
  6. PREVACID [Concomitant]
  7. CALCIUM CARBONATE [Concomitant]

REACTIONS (4)
  - DRUG DOSE OMISSION [None]
  - DRUG INEFFECTIVE [None]
  - APHAGIA [None]
  - GASTROOESOPHAGEAL REFLUX DISEASE [None]
